FAERS Safety Report 4481278-5 (Version None)
Quarter: 2004Q4

REPORT INFORMATION
  Report Type: 
  Country: None (occurrence: None)
  Receive Date: 20040923
  Receipt Date: 20040810
  Transmission Date: 20050328
  Serious: No
  Sender: FDA-Public Use
  Company Number: USA030536703

PATIENT
  Age: 85 Year
  Sex: Female
  Weight: 64 kg

DRUGS (2)
  1. FORTEO [Suspect]
     Indication: OSTEOPOROSIS
     Dosage: 20 UG/DAY
     Dates: start: 20030401
  2. PLAVIX [Concomitant]

REACTIONS (5)
  - ASTHENIA [None]
  - DIFFICULTY IN WALKING [None]
  - HYPERTENSION [None]
  - INJECTION SITE HAEMORRHAGE [None]
  - SENSATION OF HEAVINESS [None]
